FAERS Safety Report 5025924-6 (Version None)
Quarter: 2006Q2

REPORT INFORMATION
  Report Type: 
  Country: None (occurrence: None)
  Receive Date: 20060614
  Receipt Date: 20060612
  Transmission Date: 20061013
  Serious: Yes (Hospitalization)
  Sender: FDA-Public Use
  Company Number: 8017151

PATIENT
  Age: 65 Year
  Sex: Male

DRUGS (12)
  1. ACYCLOVIR [Suspect]
     Indication: PROPHYLAXIS
     Dosage: 500MG TWICE PER DAY
     Dates: start: 20060522
  2. KEPPRA [Suspect]
     Dosage: 500MG TWICE PER DAY
     Dates: start: 20060522
  3. INSULIN [Concomitant]
  4. PREDNISOLONE [Concomitant]
     Route: 047
  5. METHYLPHENIDATE HCL [Concomitant]
     Dosage: 10MG TWICE PER DAY
     Route: 048
  6. ONDANSETRON HCL [Concomitant]
     Dosage: 4MG PER DAY
     Route: 048
  7. TACROLIMUS [Concomitant]
     Dosage: 1MG TWICE PER DAY
  8. URSODIOL [Concomitant]
     Dosage: 300MG TWICE PER DAY
  9. LEXAPRO [Concomitant]
     Dosage: 20MG PER DAY
     Route: 048
  10. PROTONIX [Concomitant]
     Dosage: 40MG PER DAY
  11. REGLAN [Concomitant]
     Dosage: 10MG TWICE PER DAY
     Route: 048
  12. FLOMAX [Concomitant]
     Dosage: .4MG PER DAY

REACTIONS (1)
  - PANCYTOPENIA [None]
